FAERS Safety Report 5124004-9 (Version None)
Quarter: 2006Q3

REPORT INFORMATION
  Report Type: 
  Country: None (occurrence: None)
  Receive Date: 20060808
  Receipt Date: 20060315
  Transmission Date: 20061208
  Serious: Yes (Other)
  Sender: FDA-Public Use
  Company Number: 2006014570

PATIENT
  Age: 32 Year
  Sex: Female
  Weight: 54.4 kg

DRUGS (2)
  1. FLAGYL [Suspect]
     Indication: INFECTION PROPHYLAXIS
  2. BENZACLIN [Suspect]
     Indication: ACNE
     Dosage: TOPICAL
     Route: 061
     Dates: start: 20020101, end: 20050501

REACTIONS (9)
  - ABDOMINAL DISTENSION [None]
  - ABDOMINAL PAIN [None]
  - ANAL FISSURE [None]
  - CONSTIPATION [None]
  - DIARRHOEA [None]
  - IRRITABLE BOWEL SYNDROME [None]
  - NEUROPATHY PERIPHERAL [None]
  - PAIN IN EXTREMITY [None]
  - PROCTALGIA [None]
